FAERS Safety Report 6919477-2 (Version None)
Quarter: 2010Q3

REPORT INFORMATION
  Report Type: 
  Country: None (occurrence: None)
  Receive Date: 20100811
  Receipt Date: 20100804
  Transmission Date: 20110219
  Serious: Yes (Hospitalization, Other)
  Sender: FDA-Public Use
  Company Number: US-TEVA-243949USA

PATIENT

DRUGS (1)
  1. ETOPOSIDE [Suspect]

REACTIONS (1)
  - CARDIAC ARREST [None]
